FAERS Safety Report 10208047 (Version 1)
Quarter: 2014Q2

REPORT INFORMATION
  Report Type: Spontaneous
  Country: US (occurrence: None)
  Receive Date: 20140527
  Receipt Date: 20140527
  Transmission Date: 20141212
  Serious: No
  Sender: FDA-Public Use
  Company Number: None

PATIENT
  Age: 55 Year
  Sex: Male

DRUGS (1)
  1. 6-MERCAPTOPURINE [Suspect]
     Indication: CROHN^S DISEASE
     Dates: start: 20120913, end: 20121023

REACTIONS (9)
  - Aspartate aminotransferase increased [None]
  - Alanine aminotransferase increased [None]
  - Jaundice [None]
  - Drug level increased [None]
  - Hepatotoxicity [None]
  - Hepatitis [None]
  - Liver injury [None]
  - Hepatic necrosis [None]
  - Hepatic fibrosis [None]
